FAERS Safety Report 6198773-3 (Version None)
Quarter: 2009Q2

REPORT INFORMATION
  Report Type: 
  Country: None (occurrence: None)
  Receive Date: 20090521
  Receipt Date: 20090518
  Transmission Date: 20091009
  Serious: Yes (Disabling)
  Sender: FDA-Public Use
  Company Number: US-MERCK-00070491

PATIENT
  Age: 36 Year
  Sex: Female
  Weight: 91 kg

DRUGS (5)
  1. SINGULAIR [Suspect]
     Indication: ASTHMA
     Route: 048
     Dates: start: 20000412, end: 20000621
  2. SEREVENT [Concomitant]
     Indication: ASTHMA
     Dates: start: 20000401
  3. AZMACORT [Concomitant]
     Indication: ASTHMA
     Dates: start: 19931101
  4. ALBUTEROL [Concomitant]
     Indication: ASTHMA
     Dates: start: 19931101
  5. MEDROXYPROGESTERONE [Concomitant]
     Route: 048
     Dates: start: 19990801, end: 20000501

REACTIONS (1)
  - SUNBURN [None]
